FAERS Safety Report 16015475 (Version 1)
Quarter: 2019Q1

REPORT INFORMATION
  Report Type: Spontaneous
  Country: FR (occurrence: FR)
  Receive Date: 20190228
  Receipt Date: 20190228
  Transmission Date: 20190418
  Serious: Yes (Other)
  Sender: FDA-Public Use
  Company Number: FR-TEVA-2019-FR-1016631

PATIENT
  Age: 64 Year
  Sex: Male

DRUGS (2)
  1. AZITHROMYCINE ANHYDRE [Suspect]
     Active Substance: AZITHROMYCIN ANHYDROUS
     Indication: CHRONIC RESPIRATORY FAILURE
     Route: 048
     Dates: start: 20150619
  2. NOZINAN [Interacting]
     Active Substance: LEVOMEPROMAZINE
     Indication: CHRONIC RESPIRATORY FAILURE
     Route: 048

REACTIONS (3)
  - Tachycardia [Recovered/Resolved]
  - Drug interaction [Unknown]
  - Extrasystoles [Recovered/Resolved]

NARRATIVE: CASE EVENT DATE: 20150619
